FAERS Safety Report 4445215-1 (Version None)
Quarter: 2004Q3

REPORT INFORMATION
  Report Type: 
  Country: None (occurrence: None)
  Receive Date: 20040819
  Receipt Date: 20031204
  Transmission Date: 20050211
  Serious: Yes (Other)
  Sender: FDA-Public Use
  Company Number: 2003114701

PATIENT
  Age: 49 Year
  Sex: Female
  Weight: 67.1324 kg

DRUGS (2)
  1. NORVASC [Suspect]
     Indication: HYPERTENSION
     Dosage: 5 MG (DAILY), ORAL
     Route: 048
     Dates: start: 20031009, end: 20031001
  2. CLONIDINE [Suspect]
     Indication: ILL-DEFINED DISORDER
     Dates: start: 20031022

REACTIONS (9)
  - ANXIETY [None]
  - CHEST PAIN [None]
  - DYSPNOEA [None]
  - HOT FLUSH [None]
  - HYPERSENSITIVITY [None]
  - PAIN IN EXTREMITY [None]
  - PALPITATIONS [None]
  - RASH [None]
  - TACHYCARDIA [None]
